FAERS Safety Report 26204166 (Version 1)
Quarter: 2025Q4

REPORT INFORMATION
  Report Type: Spontaneous
  Country: GB (occurrence: GB)
  Receive Date: 20251226
  Receipt Date: 20251226
  Transmission Date: 20260118
  Serious: Yes (Other)
  Sender: AMGEN
  Company Number: None

PATIENT
  Age: 42 Year
  Sex: Male
  Weight: 76 kg

DRUGS (1)
  1. ADALIMUMAB [Suspect]
     Active Substance: ADALIMUMAB
     Indication: Uveitis
     Dosage: 40 MILLIGRAM, Q2WK (EOW)
     Route: 065
     Dates: start: 20250601, end: 20251218

REACTIONS (1)
  - Aggression [Not Recovered/Not Resolved]

NARRATIVE: CASE EVENT DATE: 20250601
